FAERS Safety Report 12631039 (Version 2)
Quarter: 2016Q3

REPORT INFORMATION
  Report Type: Spontaneous
  Country: US (occurrence: US)
  Receive Date: 20160808
  Receipt Date: 20160808
  Transmission Date: 20161109
  Serious: No
  Sender: FDA-Public Use
  Company Number: US-BEH-2015051987

PATIENT
  Sex: Female
  Weight: 83 kg

DRUGS (22)
  1. BOTOX [Concomitant]
     Active Substance: ONABOTULINUMTOXINA
  2. PROAIR HFA [Concomitant]
     Active Substance: ALBUTEROL SULFATE
  3. PROBIOTIC [Concomitant]
     Active Substance: PROBIOTICS NOS
  4. EPIPEN [Concomitant]
     Active Substance: EPINEPHRINE
  5. MOBIC [Concomitant]
     Active Substance: MELOXICAM
  6. HIZENTRA [Suspect]
     Active Substance: HUMAN IMMUNOGLOBULIN G
     Indication: IMMUNODEFICIENCY COMMON VARIABLE
     Route: 058
  7. QVAR [Concomitant]
     Active Substance: BECLOMETHASONE DIPROPIONATE
  8. OSTEO BI-FLEX [Concomitant]
     Active Substance: CHONDROITIN SULFATE A\GLUCOSAMINE
  9. ACETAMINOPHEN. [Concomitant]
     Active Substance: ACETAMINOPHEN
  10. SINGULAIR [Concomitant]
     Active Substance: MONTELUKAST SODIUM
  11. PREVACID [Concomitant]
     Active Substance: LANSOPRAZOLE
  12. PRAVASTATIN. [Concomitant]
     Active Substance: PRAVASTATIN
  13. TIZANIDINE HCL [Concomitant]
     Active Substance: TIZANIDINE HYDROCHLORIDE
  14. DIPHENHYDRAMINE. [Concomitant]
     Active Substance: DIPHENHYDRAMINE
  15. LMX [Concomitant]
     Active Substance: LIDOCAINE
  16. MAGNESIUM [Concomitant]
     Active Substance: MAGNESIUM
  17. FISH OIL [Concomitant]
     Active Substance: FISH OIL
  18. CALCIUM+D [Concomitant]
     Active Substance: CALCIUM\VITAMIN D
  19. ALLEGRA-D [Concomitant]
     Active Substance: FEXOFENADINE\PSEUDOEPHEDRINE
  20. WELLBUTRIN [Concomitant]
     Active Substance: BUPROPION HYDROCHLORIDE
  21. ZYRTEC [Concomitant]
     Active Substance: CETIRIZINE HYDROCHLORIDE
  22. METOPROLOL SUCCINATE. [Concomitant]
     Active Substance: METOPROLOL SUCCINATE

REACTIONS (2)
  - Abdominal distension [Unknown]
  - Abdominal discomfort [Unknown]
